FAERS Safety Report 6809630-0 (Version None)
Quarter: 2010Q2

REPORT INFORMATION
  Report Type: 
  Country: None (occurrence: None)
  Receive Date: 20100630
  Receipt Date: 20100618
  Transmission Date: 20101027
  Serious: Yes (Other)
  Sender: FDA-Public Use
  Company Number: JP-PFIZER INC-2010076100

PATIENT

DRUGS (1)
  1. GABAPEN [Suspect]
     Indication: NEURALGIA
     Dosage: 2 DF, 1X/DAY
     Dates: start: 20100617

REACTIONS (3)
  - BRADYPHRENIA [None]
  - MUSCULAR WEAKNESS [None]
  - SOMNOLENCE [None]
